FAERS Safety Report 15694856 (Version 1)
Quarter: 2018Q4

REPORT INFORMATION
  Report Type: Spontaneous
  Country: FR (occurrence: FR)
  Receive Date: 20181206
  Receipt Date: 20181206
  Transmission Date: 20190205
  Serious: Yes (Death)
  Sender: FDA-Public Use
  Company Number: FR-PFIZER INC-2018501083

PATIENT
  Age: 67 Year
  Sex: Male
  Weight: 121 kg

DRUGS (4)
  1. CRESEMBA [Suspect]
     Active Substance: ISAVUCONAZONIUM SULFATE
     Indication: MUCORMYCOSIS
     Dosage: 3 DF, 1X/DAY
     Route: 042
     Dates: start: 20180903, end: 20180914
  2. TAZOCILLINE [Suspect]
     Active Substance: PIPERACILLIN SODIUM\TAZOBACTAM SODIUM
     Indication: LUNG DISORDER
     Dosage: 4 DF, 1X/DAY
     Route: 042
     Dates: start: 20180907, end: 20180914
  3. MERONEM [Suspect]
     Active Substance: MEROPENEM
     Indication: LUNG DISORDER
     Dosage: 3 DF, 1X/DAY
     Route: 042
     Dates: start: 20180823, end: 20180910
  4. AMBISOME [Suspect]
     Active Substance: AMPHOTERICIN B
     Indication: BRONCHOPULMONARY ASPERGILLOSIS
     Dosage: 800 MG, 1X/DAY
     Route: 042
     Dates: start: 20180831, end: 20180916

REACTIONS (3)
  - Multiple organ dysfunction syndrome [Fatal]
  - Hepatitis cholestatic [Fatal]
  - Condition aggravated [Fatal]

NARRATIVE: CASE EVENT DATE: 20180912
